FAERS Safety Report 5537134-4 (Version None)
Quarter: 2007Q4

REPORT INFORMATION
  Report Type: 
  Country: None (occurrence: None)
  Receive Date: 20071207
  Receipt Date: 20071203
  Transmission Date: 20080405
  Serious: Yes (Other)
  Sender: FDA-Public Use
  Company Number: US-JNJFOC-20071200860

PATIENT
  Age: 7 Year
  Sex: Female
  Weight: 36.29 kg

DRUGS (2)
  1. TYLENOL [Suspect]
     Indication: COUGH
  2. SINGULAIR [Concomitant]
     Indication: MULTIPLE ALLERGIES

REACTIONS (1)
  - URTICARIA [None]
